FAERS Safety Report 10452586 (Version 2)
Quarter: 2014Q3

REPORT INFORMATION
  Report Type: Report from Study
  Country: CA (occurrence: CA)
  Receive Date: 20140915
  Receipt Date: 20140915
  Transmission Date: 20150326
  Serious: Yes (Hospitalization)
  Sender: FDA-Public Use
  Company Number: CA-MERCK-1409CAN004897

PATIENT
  Age: 39 Year
  Sex: Male

DRUGS (3)
  1. PEMBROLIZUMAB. [Suspect]
     Active Substance: PEMBROLIZUMAB
     Indication: HAEMATOLOGICAL MALIGNANCY
     Dosage: 10 MG/KG,  EVERY TWO WEEKS (Q2W)
     Route: 042
  2. TYLENOL WITH CODEINE [Concomitant]
     Active Substance: ACETAMINOPHEN\CODEINE PHOSPHATE
     Indication: HEADACHE
     Dosage: UNK, PRN
     Route: 048
     Dates: start: 20140824
  3. SODIUM CHLORIDE. [Concomitant]
     Active Substance: SODIUM CHLORIDE
     Indication: DEHYDRATION
     Dosage: TOTAL DAILY DOSE 1000 ML, FREQUENCY CONTINOUS
     Route: 042
     Dates: start: 20140823, end: 20140826

REACTIONS (1)
  - Pneumonia [Unknown]

NARRATIVE: CASE EVENT DATE: 20140903
